FAERS Safety Report 5398386-7 (Version None)
Quarter: 2007Q3

REPORT INFORMATION
  Report Type: 
  Country: None (occurrence: None)
  Receive Date: 20070726
  Receipt Date: 20070427
  Transmission Date: 20080115
  Serious: No
  Sender: FDA-Public Use
  Company Number: US-AMGEN-KDL222157

PATIENT
  Sex: Female
  Weight: 50.8 kg

DRUGS (4)
  1. PROCRIT [Suspect]
     Indication: RENAL FAILURE CHRONIC
     Dates: start: 20050401
  2. NORVASC [Concomitant]
     Dates: start: 20050101
  3. COZAAR [Concomitant]
     Dates: start: 20050101
  4. NEXIUM [Concomitant]
     Dates: start: 20050101

REACTIONS (2)
  - PRURITUS GENERALISED [None]
  - SKIN HAEMORRHAGE [None]
